FAERS Safety Report 8198938 (Version 6)
Quarter: 2012Q4

REPORT INFORMATION
  Report Type: 
  Country: US (occurrence: US)
  Receive Date: 20111025
  Receipt Date: 20121019
  Transmission Date: 20130627
  Serious: Yes (Hospitalization)
  Sender: FDA-Public Use
  Company Number: US-ACTELION-A-US2011-55875

PATIENT
  Age: 2 Year
  Sex: Female

DRUGS (3)
  1. TRACLEER [Suspect]
     Indication: PULMONARY ARTERIAL HYPERTENSION
     Dosage: UNK
     Route: 048
     Dates: start: 20110408
  2. REMODULIN [Suspect]
  3. REVATIO [Concomitant]

REACTIONS (7)
  - Device related infection [Recovering/Resolving]
  - Catheter placement [Recovering/Resolving]
  - Device damage [Unknown]
  - Respiratory tract infection [Unknown]
  - Pyrexia [Unknown]
  - Viral infection [Unknown]
  - Device damage [Unknown]
